FAERS Safety Report 16039683 (Version 1)
Quarter: 2019Q1

REPORT INFORMATION
  Report Type: Spontaneous
  Country: US (occurrence: US)
  Receive Date: 20190306
  Receipt Date: 20190306
  Transmission Date: 20190418
  Serious: No
  Sender: FDA-Public Use
  Company Number: US-TEVA-2019-US-1009626

PATIENT
  Sex: Female
  Weight: 95.34 kg

DRUGS (1)
  1. LISINOPRIL TEVA [Suspect]
     Active Substance: LISINOPRIL
     Indication: BLOOD PRESSURE MEASUREMENT
     Dosage: 40 MILLIGRAM DAILY;
     Dates: start: 2016

REACTIONS (2)
  - Dyspnoea [Unknown]
  - Drug ineffective [Unknown]
